FAERS Safety Report 5085759-5 (Version None)
Quarter: 2006Q3

REPORT INFORMATION
  Report Type: 
  Country: None (occurrence: None)
  Receive Date: 20060817
  Receipt Date: 20060803
  Transmission Date: 20061208
  Serious: Yes (Hospitalization)
  Sender: FDA-Public Use
  Company Number: 2006094993

PATIENT
  Age: 29 Year
  Sex: Female
  Weight: 49.2 kg

DRUGS (16)
  1. SILDENAFIL CITRATE [Suspect]
     Indication: PULMONARY HYPERTENSION
     Dosage: 60 MG (20 MG,3 IN 1 D), ORAL
     Route: 048
     Dates: start: 20050928, end: 20060802
  2. FLOLAN [Suspect]
     Indication: DRUG USE FOR UNKNOWN INDICATION
     Dosage: INTRAVENOUS
     Route: 042
     Dates: start: 20050128
  3. SPIRONOLACTONE [Concomitant]
  4. LASIX [Concomitant]
  5. LANOXIN [Concomitant]
  6. KLOR-CON [Concomitant]
  7. PREVACID [Concomitant]
  8. ACETAMINOPHEN [Concomitant]
  9. WARFARIN SODIUM [Concomitant]
  10. PRILOSEC [Concomitant]
  11. LOPERAMIDE HYDROCHLORIDE [Concomitant]
  12. TEMAZEPAM [Concomitant]
  13. BACTROBAN (MUPIROCIN) [Concomitant]
  14. TOPICORT [Concomitant]
  15. PREDNISONE TAB [Concomitant]
  16. VISTARIL (HYDROXYZINE EMBONATE) [Concomitant]

REACTIONS (16)
  - CATHETER SITE RELATED REACTION [None]
  - CONDITION AGGRAVATED [None]
  - DRUG ERUPTION [None]
  - EOSINOPHIL COUNT INCREASED [None]
  - NO THERAPEUTIC RESPONSE [None]
  - NONSPECIFIC REACTION [None]
  - ORAL SOFT TISSUE DISORDER [None]
  - PHARYNGEAL LESION [None]
  - RASH [None]
  - SKIN BACTERIAL INFECTION [None]
  - SKIN LESION [None]
  - STAPHYLOCOCCAL INFECTION [None]
  - SUPERINFECTION [None]
  - ULCER [None]
  - URTICARIA [None]
  - VULVAL DISORDER [None]
